FAERS Safety Report 9313975 (Version 1)
Quarter: 2013Q2

REPORT INFORMATION
  Report Type: Spontaneous
  Country: US (occurrence: None)
  Receive Date: 20130524
  Receipt Date: 20130524
  Transmission Date: 20140414
  Serious: Yes (Hospitalization)
  Sender: FDA-Public Use
  Company Number: None

PATIENT
  Age: 56 Year
  Sex: Male
  Weight: 80.5 kg

DRUGS (1)
  1. COPAXONE [Suspect]
     Route: 058
     Dates: start: 201011

REACTIONS (4)
  - Dyspnoea [None]
  - Chest pain [None]
  - Abdominal distension [None]
  - Choking sensation [None]
